FAERS Safety Report 13609804 (Version 1)
Quarter: 2017Q2

REPORT INFORMATION
  Report Type: Spontaneous
  Country: GB (occurrence: GB)
  Receive Date: 20170602
  Receipt Date: 20170602
  Transmission Date: 20170830
  Serious: Yes (Hospitalization, Other)
  Sender: FDA-Public Use
  Company Number: GB-MYLANLABS-2017M1032162

PATIENT

DRUGS (7)
  1. PARACETAMOL [Concomitant]
     Active Substance: ACETAMINOPHEN
  2. METFORMIN [Concomitant]
     Active Substance: METFORMIN HYDROCHLORIDE
  3. LOPERAMIDE [Concomitant]
     Active Substance: LOPERAMIDE
  4. INDAPAMIDE. [Suspect]
     Active Substance: INDAPAMIDE
     Route: 048
  5. HUMAN INSULATARD [Concomitant]
     Active Substance: INSULIN HUMAN
  6. TEMAZEPAM. [Concomitant]
     Active Substance: TEMAZEPAM
  7. FELODIPINE. [Concomitant]
     Active Substance: FELODIPINE

REACTIONS (3)
  - Hyponatraemia [Recovering/Resolving]
  - Hypokalaemia [Recovering/Resolving]
  - Hypomagnesaemia [Recovering/Resolving]
